FAERS Safety Report 6858084-7 (Version None)
Quarter: 2010Q3

REPORT INFORMATION
  Report Type: 
  Country: None (occurrence: None)
  Receive Date: 20100719
  Receipt Date: 20080915
  Transmission Date: 20110219
  Serious: Yes (Other)
  Sender: FDA-Public Use
  Company Number: US-PFIZER INC-2008009000

PATIENT
  Age: 45 Year
  Sex: Male
  Weight: 90.7 kg

DRUGS (3)
  1. CHANTIX [Suspect]
     Indication: SMOKING CESSATION THERAPY
     Dates: start: 20080101
  2. EFFEXOR [Concomitant]
     Indication: DEPRESSION
  3. REQUIP [Concomitant]
     Indication: RESTLESS LEGS SYNDROME

REACTIONS (5)
  - BALANCE DISORDER [None]
  - DIZZINESS [None]
  - HYPERTENSION [None]
  - LOSS OF CONSCIOUSNESS [None]
  - NAUSEA [None]
